FAERS Safety Report 4817172-7 (Version None)
Quarter: 2005Q4

REPORT INFORMATION
  Report Type: 
  Country: None (occurrence: None)
  Receive Date: 20051101
  Receipt Date: 20051021
  Transmission Date: 20060501
  Serious: Yes (Other)
  Sender: FDA-Public Use
  Company Number: 2005AP05542

PATIENT
  Age: 41 Year
  Sex: Male

DRUGS (3)
  1. ANAPEINE [Suspect]
     Indication: EPIDURAL ANAESTHESIA
     Route: 008
     Dates: start: 20050925, end: 20050928
  2. MORPHINE [Concomitant]
     Route: 008
     Dates: start: 20050925, end: 20050927
  3. LEPETAN [Concomitant]
     Route: 008
     Dates: start: 20050927, end: 20050928

REACTIONS (1)
  - SPINAL CORD INFARCTION [None]
